FAERS Safety Report 8820338 (Version 1)
Quarter: 2012Q4

REPORT INFORMATION
  Report Type: 
  Country: US (occurrence: US)
  Receive Date: 20121002
  Receipt Date: 20121002
  Transmission Date: 20130627
  Serious: No
  Sender: FDA-Public Use
  Company Number: US-009507513-1210USA000051

PATIENT
  Age: 56 Year
  Sex: Male

DRUGS (1)
  1. ISENTRESS [Suspect]

REACTIONS (4)
  - Musculoskeletal stiffness [Unknown]
  - Hypoaesthesia [Unknown]
  - Pain in extremity [Unknown]
  - Arthralgia [Unknown]
